FAERS Safety Report 24212618 (Version 2)
Quarter: 2025Q1

REPORT INFORMATION
  Report Type: Spontaneous
  Country: FR (occurrence: FR)
  Receive Date: 20240815
  Receipt Date: 20250129
  Transmission Date: 20250409
  Serious: Yes (Hospitalization, Other)
  Sender: AUROBINDO
  Company Number: FR-AFSSAPS-NY2024000849

PATIENT
  Age: 22 Year
  Sex: Male
  Weight: 195 kg

DRUGS (10)
  1. AMOXICILLIN [Suspect]
     Active Substance: AMOXICILLIN
     Indication: Erysipelas
     Dosage: 6 GRAM, ONCE A DAY
     Route: 048
     Dates: start: 20240709, end: 20240715
  2. AMOXICILLIN [Suspect]
     Active Substance: AMOXICILLIN
     Dosage: 3 GRAM, ONCE A DAY
     Route: 048
     Dates: start: 20240715, end: 20240717
  3. ABILIFY [Concomitant]
     Active Substance: ARIPIPRAZOLE
     Indication: Behaviour disorder
     Route: 048
  4. ACUPAN [Concomitant]
     Active Substance: NEFOPAM HYDROCHLORIDE
     Indication: Pain
     Dosage: 30 MILLIGRAM, 3 TIMES A DAY
     Route: 048
  5. DOLIPRANE [Concomitant]
     Active Substance: ACETAMINOPHEN
     Indication: Pain
     Dosage: 3 GRAM, ONCE A DAY
     Route: 048
  6. SOMATROPIN [Concomitant]
     Active Substance: SOMATROPIN
     Indication: Prader-Willi syndrome
     Route: 065
  7. LEVOTHYROXINE [Concomitant]
     Active Substance: LEVOTHYROXINE
     Indication: Hypothyroidism
     Dosage: 1 DOSAGE FORM, ONCE A DAY
     Route: 048
  8. LOVENOX [Concomitant]
     Active Substance: ENOXAPARIN SODIUM
     Indication: Thrombosis prophylaxis
     Route: 058
  9. VICTOZA [Concomitant]
     Active Substance: LIRAGLUTIDE
     Indication: Obesity
     Route: 058
  10. ZOLOFT [Concomitant]
     Active Substance: SERTRALINE HYDROCHLORIDE
     Indication: Depression
     Route: 048

REACTIONS (2)
  - Acute kidney injury [Recovered/Resolved]
  - Crystalluria [Not Recovered/Not Resolved]

NARRATIVE: CASE EVENT DATE: 20240711
